FAERS Safety Report 6218125-7 (Version None)
Quarter: 2009Q2

REPORT INFORMATION
  Report Type: 
  Country: None (occurrence: None)
  Receive Date: 20090608
  Receipt Date: 20090530
  Transmission Date: 20091009
  Serious: Yes (Other)
  Sender: FDA-Public Use
  Company Number: PHHY2009BR21367

PATIENT
  Sex: Female

DRUGS (4)
  1. EXELON [Suspect]
     Indication: DEMENTIA ALZHEIMER'S TYPE
     Dosage: 9MG/5CM2
     Route: 062
     Dates: start: 20090201, end: 20090501
  2. EXELON [Suspect]
     Dosage: 18MG/CM2
     Route: 062
     Dates: start: 20090501
  3. EXELON [Suspect]
     Dosage: 9MG/5CM2
     Route: 062
  4. ANTIPSYCHOTICS [Concomitant]

REACTIONS (6)
  - ABNORMAL BEHAVIOUR [None]
  - AGGRESSION [None]
  - AGITATION [None]
  - DELIRIUM [None]
  - INSOMNIA [None]
  - SPEECH DISORDER [None]
